FAERS Safety Report 6730899-5 (Version None)
Quarter: 2010Q2

REPORT INFORMATION
  Report Type: 
  Country: None (occurrence: None)
  Receive Date: 20100518
  Receipt Date: 20100506
  Transmission Date: 20101027
  Serious: Yes (Other)
  Sender: FDA-Public Use
  Company Number: PHHY2010US24680

PATIENT
  Sex: Female
  Weight: 58.957 kg

DRUGS (2)
  1. RECLAST [Suspect]
     Indication: OSTEOPOROSIS
     Dosage: 5 MG YEARLY
     Route: 042
     Dates: start: 20100413
  2. KEPPRA [Concomitant]
     Indication: CONVULSION
     Route: 048

REACTIONS (2)
  - HEAD DISCOMFORT [None]
  - NECK PAIN [None]
